FAERS Safety Report 15633786 (Version 1)
Quarter: 2018Q4

REPORT INFORMATION
  Report Type: Spontaneous
  Country: US (occurrence: US)
  Receive Date: 20181119
  Receipt Date: 20181119
  Transmission Date: 20190205
  Serious: Yes (Death)
  Sender: FDA-Public Use
  Company Number: None

PATIENT
  Age: 71 Year
  Sex: Female

DRUGS (9)
  1. ACYCLOVIR. [Concomitant]
     Active Substance: ACYCLOVIR
  2. CALCIUM [Concomitant]
     Active Substance: CALCIUM
  3. WARFARIN [Concomitant]
     Active Substance: WARFARIN
  4. IBRANCE [Suspect]
     Active Substance: PALBOCICLIB
     Indication: BREAST CANCER
     Dosage: ?          OTHER FREQUENCY:QD DAYS 1-21;?
     Route: 048
     Dates: start: 20180107
  5. BISOPROL FUM [Concomitant]
     Active Substance: BISOPROLOL FUMARATE
  6. TORSEMIDE. [Concomitant]
     Active Substance: TORSEMIDE
  7. ONDANSETRON [Concomitant]
     Active Substance: ONDANSETRON
  8. ALPRAZOLAM. [Concomitant]
     Active Substance: ALPRAZOLAM
  9. LETROZOLE. [Concomitant]
     Active Substance: LETROZOLE

REACTIONS (1)
  - Death [None]

NARRATIVE: CASE EVENT DATE: 20181109
